FAERS Safety Report 8695757 (Version 2)
Quarter: 2013Q4

REPORT INFORMATION
  Report Type: Spontaneous
  Country: US (occurrence: US)
  Receive Date: 20120731
  Receipt Date: 20131101
  Transmission Date: 20140711
  Serious: No
  Sender: FDA-Public Use
  Company Number: US-009507513-1207USA006227

PATIENT
  Age: 73 Year
  Sex: Female

DRUGS (2)
  1. AZASITE [Suspect]
     Indication: BLEPHARITIS
     Dosage: 2 GTT, BID
     Route: 047
     Dates: start: 20120709
  2. AZASITE [Suspect]
     Dosage: 2 GTT, QD

REACTIONS (2)
  - Eye irritation [Recovered/Resolved]
  - Incorrect drug administration duration [Unknown]
